FAERS Safety Report 10726319 (Version 1)
Quarter: 2015Q1

REPORT INFORMATION
  Report Type: Spontaneous
  Country: US (occurrence: None)
  Receive Date: 20150120
  Receipt Date: 20150120
  Transmission Date: 20150721
  Serious: Yes (Life-Threatening)
  Sender: FDA-Public Use
  Company Number: None

PATIENT
  Age: 17 Year
  Sex: Female
  Weight: 90.3 kg

DRUGS (2)
  1. ALLERGEN, GRASS 1.1 [Suspect]
     Active Substance: ALLERGENIC EXTRACT- GRASS
     Indication: IMMUNE TOLERANCE INDUCTION
     Dates: start: 20141018
  2. ALLERGENIC EXTRACTS STANDARDIZED MITE [Suspect]
     Active Substance: DERMATOPHAGOIDES FARINAE\DERMATOPHAGOIDES PTERONYSSINUS
     Indication: IMMUNE TOLERANCE INDUCTION
     Dates: start: 20141018

REACTIONS (6)
  - Angioedema [None]
  - Injection site reaction [None]
  - Erythema [None]
  - Urticaria [None]
  - Inappropriate schedule of drug administration [None]
  - Pruritus [None]

NARRATIVE: CASE EVENT DATE: 20141118
